FAERS Safety Report 19744678 (Version 1)
Quarter: 2021Q3

REPORT INFORMATION
  Report Type: Spontaneous
  Country: US (occurrence: US)
  Receive Date: 20210823
  Receipt Date: 20210823
  Transmission Date: 20211014
  Serious: Yes (Other)
  Sender: FDA-Public Use
  Company Number: None

PATIENT
  Age: 23 Year

DRUGS (1)
  1. NEXPLANON [Suspect]
     Active Substance: ETONOGESTREL

REACTIONS (5)
  - Infection parasitic [None]
  - Hormone level abnormal [None]
  - Depression [None]
  - Weight increased [None]
  - Complication associated with device [None]

NARRATIVE: CASE EVENT DATE: 20200203
